FAERS Safety Report 9484175 (Version 1)
Quarter: 2013Q3

REPORT INFORMATION
  Report Type: Spontaneous
  Country: US (occurrence: US)
  Receive Date: 20130828
  Receipt Date: 20130828
  Transmission Date: 20140515
  Serious: Yes (Hospitalization)
  Sender: FDA-Public Use
  Company Number: US-AMGEN-KDL385049

PATIENT
  Age: 0 Day
  Sex: Female

DRUGS (1)
  1. ENBREL [Suspect]
     Dosage: 50 MG, Q2WK
     Route: 064
     Dates: start: 20050521

REACTIONS (1)
  - Jaundice neonatal [Unknown]
